FAERS Safety Report 4290710-1 (Version None)
Quarter: 2004Q1

REPORT INFORMATION
  Report Type: 
  Country: None (occurrence: None)
  Receive Date: 20040211
  Receipt Date: 20031006
  Transmission Date: 20041129
  Serious: No
  Sender: FDA-Public Use
  Company Number: US-GLAXOSMITHKLINE-A0428864A

PATIENT
  Age: 79 Year
  Sex: Male
  Weight: 93.6 kg

DRUGS (1)
  1. PAXIL [Suspect]
     Route: 065

REACTIONS (5)
  - ABASIA [None]
  - BLOOD GLUCOSE DECREASED [None]
  - CONFUSIONAL STATE [None]
  - DIZZINESS [None]
  - VISION BLURRED [None]
